FAERS Safety Report 8915198 (Version 2)
Quarter: 2012Q4

REPORT INFORMATION
  Report Type: Report from Study
  Country: DE (occurrence: DE)
  Receive Date: 20121116
  Receipt Date: 20121127
  Transmission Date: 20130627
  Serious: Yes (Life-Threatening, Hospitalization)
  Sender: FDA-Public Use
  Company Number: DE-TEVA-370424GER

PATIENT
  Age: 30 Year
  Sex: Female
  Weight: 73 kg

DRUGS (6)
  1. MYOCET [Suspect]
     Indication: BREAST CANCER
     Route: 042
     Dates: start: 20120627, end: 20120807
  2. MYOCET [Suspect]
     Route: 042
     Dates: start: 20120808, end: 20121101
  3. CARBOPLATIN [Suspect]
     Indication: BREAST CANCER
     Dosage: AUC
     Route: 042
     Dates: start: 20120627, end: 20121101
  4. TAXOL [Suspect]
     Indication: BREAST CANCER
     Route: 042
     Dates: start: 20120627, end: 20120807
  5. TAXOL [Suspect]
     Route: 042
     Dates: start: 20120808, end: 20121101
  6. BEVACIZUMAB [Suspect]
     Indication: BREAST CANCER
     Route: 042
     Dates: start: 20120627, end: 20121101

REACTIONS (1)
  - Pancytopenia [Recovered/Resolved]
